FAERS Safety Report 8951090 (Version 1)
Quarter: 2012Q4

REPORT INFORMATION
  Report Type: Spontaneous
  Country: US (occurrence: None)
  Receive Date: 20121130
  Receipt Date: 20121130
  Transmission Date: 20130627
  Serious: Yes (Other)
  Sender: FDA-Public Use
  Company Number: USA/USA/12/0026822

PATIENT
  Age: 36 Year
  Sex: Female

DRUGS (1)
  1. MINOCYCLINE HYDROCHLORIDE [Suspect]
     Indication: VASCULITIS

REACTIONS (6)
  - Cholecystitis [None]
  - Vasculitis [None]
  - Arthralgia [None]
  - Abdominal pain [None]
  - Mononeuropathy multiplex [None]
  - Polyarteritis nodosa [None]
